FAERS Safety Report 18168500 (Version 1)
Quarter: 2020Q3

REPORT INFORMATION
  Report Type: Report from Study
  Country: CA (occurrence: CA)
  Receive Date: 20200819
  Receipt Date: 20200819
  Transmission Date: 20201103
  Serious: Yes (Death)
  Sender: FDA-Public Use
  Company Number: NVSC2019CA084336

PATIENT
  Age: 73 Year
  Sex: Female

DRUGS (3)
  1. MOUTH WASH [Concomitant]
     Indication: PRODUCT USED FOR UNKNOWN INDICATION
     Dosage: UNK
     Route: 065
  2. EXEMESTANE. [Concomitant]
     Active Substance: EXEMESTANE
     Indication: PRODUCT USED FOR UNKNOWN INDICATION
     Dosage: UNK
     Route: 065
  3. AFINITOR [Suspect]
     Active Substance: EVEROLIMUS
     Indication: BREAST CANCER
     Dosage: 10 MG, QD
     Route: 048
     Dates: start: 20191207

REACTIONS (5)
  - Death [Fatal]
  - Oropharyngeal pain [Recovered/Resolved]
  - Sputum discoloured [Recovered/Resolved]
  - Sputum abnormal [Recovered/Resolved]
  - Eating disorder [Unknown]

NARRATIVE: CASE EVENT DATE: 20200505
